FAERS Safety Report 8351511-8 (Version None)
Quarter: 2012Q2

REPORT INFORMATION
  Report Type: 
  Country: None (occurrence: None)
  Receive Date: 20120511
  Receipt Date: 20120427
  Transmission Date: 20120825
  Serious: Yes (Death, Life-Threatening, Other)
  Sender: FDA-Public Use
  Company Number: US-MYLANLABS-2009AC000004

PATIENT
  Sex: Male
  Weight: 89.81 kg

DRUGS (13)
  1. PROTONIX [Concomitant]
  2. PHOSLO [Concomitant]
  3. FUROSEMIDE [Concomitant]
  4. SPIRIVA [Concomitant]
  5. DIALYVITE [Concomitant]
  6. CLONIDINE [Concomitant]
  7. PLAVIX [Concomitant]
  8. DIGOXIN [Suspect]
     Dates: start: 20070601, end: 20080530
  9. SPIRONOLACTONE [Concomitant]
  10. AMLODIPINE BESYLATE [Concomitant]
  11. ADVAIR DISKUS 100/50 [Concomitant]
  12. AZITHROMYCIN [Concomitant]
  13. ALTACE [Concomitant]

REACTIONS (7)
  - INJURY [None]
  - DEATH [None]
  - ECONOMIC PROBLEM [None]
  - IMPLANTABLE DEFIBRILLATOR INSERTION [None]
  - ILL-DEFINED DISORDER [None]
  - MYOCARDIAL INFARCTION [None]
  - CARDIAC DISORDER [None]
